FAERS Safety Report 4781341-5 (Version None)
Quarter: 2005Q3

REPORT INFORMATION
  Report Type: 
  Country: None (occurrence: None)
  Receive Date: 20050928
  Receipt Date: 20050915
  Transmission Date: 20060218
  Serious: Yes (Other)
  Sender: FDA-Public Use
  Company Number: 2005GB01803

PATIENT
  Sex: Female

DRUGS (2)
  1. SEROQUEL [Suspect]
     Indication: SCHIZOPHRENIA
     Route: 048
     Dates: start: 20050908
  2. CLOZARIL [Concomitant]
     Indication: SCHIZOPHRENIA
     Dates: start: 20030101

REACTIONS (1)
  - NEUTROPENIA [None]
